FAERS Safety Report 5243173-3 (Version None)
Quarter: 2007Q1

REPORT INFORMATION
  Report Type: 
  Country: None (occurrence: None)
  Receive Date: 20070221
  Receipt Date: 20070213
  Transmission Date: 20070707
  Serious: Yes (Hospitalization)
  Sender: FDA-Public Use
  Company Number: PH-PFIZER INC-2007011469

PATIENT
  Age: 28 Year
  Sex: Male

DRUGS (1)
  1. DILANTIN [Suspect]
     Indication: CONVULSION
     Route: 048

REACTIONS (3)
  - CHEILITIS [None]
  - CONJUNCTIVITIS [None]
  - RASH [None]
